FAERS Safety Report 9148352 (Version 2)
Quarter: 2013Q1

REPORT INFORMATION
  Report Type: Spontaneous
  Country: KR (occurrence: None)
  Receive Date: 20130220
  Receipt Date: 20130322
  Transmission Date: 20140127
  Serious: Yes (Death)
  Sender: FDA-Public Use
  Company Number: JP-2013-10287

PATIENT
  Age: 73 Year
  Sex: Male

DRUGS (9)
  1. OPC-13013 [Suspect]
     Indication: CORONARY ARTERY DISEASE
     Route: 048
     Dates: start: 20100924, end: 20101001
  2. OPC-13013 [Suspect]
     Indication: CAROTID ARTERY STENT INSERTION
     Route: 048
     Dates: start: 20100924, end: 20101001
  3. OPC-13013 [Suspect]
     Indication: POST PROCEDURAL COMPLICATION
     Route: 048
     Dates: start: 20100924, end: 20101001
  4. ASPIRIN [Suspect]
     Indication: CORONARY ARTERY DISEASE
     Route: 048
     Dates: start: 20100924, end: 20101001
  5. ASPIRIN [Suspect]
     Indication: CAROTID ARTERY STENT INSERTION
     Route: 048
     Dates: start: 20100924, end: 20101001
  6. ASPIRIN [Suspect]
     Indication: POST PROCEDURAL COMPLICATION
     Route: 048
     Dates: start: 20100924, end: 20101001
  7. CLOPIDOGREL [Suspect]
     Indication: CORONARY ARTERY DISEASE
     Route: 048
     Dates: start: 20100924, end: 20101001
  8. CLOPIDOGREL [Suspect]
     Indication: CAROTID ARTERY STENT INSERTION
     Route: 048
     Dates: start: 20100924, end: 20101001
  9. CLOPIDOGREL [Suspect]
     Indication: POST PROCEDURAL COMPLICATION
     Route: 048
     Dates: start: 20100924, end: 20101001

REACTIONS (2)
  - Apnoea [None]
  - Pneumonia [None]
